FAERS Safety Report 8121250-7 (Version None)
Quarter: 2012Q1

REPORT INFORMATION
  Report Type: 
  Country: None (occurrence: None)
  Receive Date: 20120208
  Receipt Date: 20120126
  Transmission Date: 20120608
  Serious: Yes (Hospitalization)
  Sender: FDA-Public Use
  Company Number: US-ELI_LILLY_AND_COMPANY-US201102002880

PATIENT
  Sex: Female

DRUGS (3)
  1. FORTEO [Suspect]
     Dosage: 20 UG, QD
     Route: 058
  2. FORTEO [Suspect]
     Dosage: 20 UG, QD
     Route: 058
  3. FORTEO [Suspect]
     Indication: OSTEOPOROSIS
     Dosage: 20 UG, QD
     Route: 058
     Dates: start: 20101022, end: 20101022

REACTIONS (9)
  - LIMB DISCOMFORT [None]
  - CONSTIPATION [None]
  - OSTEOMYELITIS [None]
  - PRURITUS [None]
  - EAR PAIN [None]
  - SINUSITIS [None]
  - DIARRHOEA [None]
  - BRONCHITIS [None]
  - WEIGHT DECREASED [None]
